FAERS Safety Report 7983318-5 (Version None)
Quarter: 2011Q4

REPORT INFORMATION
  Report Type: 
  Country: None (occurrence: None)
  Receive Date: 20111215
  Receipt Date: 20111206
  Transmission Date: 20120403
  Serious: Yes (Hospitalization, Other)
  Sender: FDA-Public Use
  Company Number: US-BAYER-2011-049498

PATIENT
  Age: 47 Year
  Sex: Female
  Weight: 62.585 kg

DRUGS (18)
  1. ASCORBIC ACID [Concomitant]
     Route: 048
  2. YASMIN [Suspect]
     Indication: PRODUCT USED FOR UNKNOWN INDICATION
     Dosage: UNK
     Dates: start: 20050801, end: 20060801
  3. VITAMIN E [Concomitant]
     Route: 048
  4. YAZ [Suspect]
     Dosage: UNK
     Dates: start: 20070321, end: 20090602
  5. YASMIN [Suspect]
     Dosage: UNK
     Dates: start: 20070321, end: 20090602
  6. CALCIUM WITH MAGNESIUM [Concomitant]
     Route: 048
  7. LEVOTHYROXINE SODIUM [Concomitant]
     Dosage: 100 MCG/24HR, UNK
     Route: 048
  8. ASPIRIN [Concomitant]
     Route: 048
  9. PERCOCET-5 [Concomitant]
     Indication: PAIN
     Route: 048
  10. PRILOSEC [Concomitant]
     Dosage: UNK
     Route: 048
  11. ACETAMINOPHEN [Concomitant]
     Route: 048
  12. MULTI-VITAMINS [Concomitant]
     Route: 048
  13. FLAX SEED OIL [Concomitant]
     Route: 048
  14. PROMETHAZINE [Concomitant]
     Dosage: 25 MG, UNK
     Route: 048
  15. HYDROCHLOROTHIAZIDE [Concomitant]
     Dosage: 25 MG, UNK
     Route: 048
  16. PREVACID [Concomitant]
     Dosage: 30 MG, UNK
     Route: 048
  17. HYDROCODONE [Concomitant]
     Indication: PROCEDURAL PAIN
     Dosage: UNK
     Route: 048
     Dates: start: 20070921
  18. YAZ [Suspect]
     Indication: PRODUCT USED FOR UNKNOWN INDICATION
     Dosage: UNK
     Dates: start: 20050801, end: 20060801

REACTIONS (12)
  - POST-TRAUMATIC STRESS DISORDER [None]
  - APPENDICITIS [None]
  - GALLBLADDER INJURY [None]
  - CHOLECYSTITIS ACUTE [None]
  - ABDOMINAL PAIN UPPER [None]
  - PAIN [None]
  - INJURY [None]
  - CYSTOSCOPY [None]
  - APPENDICECTOMY [None]
  - OBSESSIVE-COMPULSIVE DISORDER [None]
  - DEPRESSION [None]
  - NEPHROLITHIASIS [None]
